FAERS Safety Report 14588729 (Version 1)
Quarter: 2018Q1

REPORT INFORMATION
  Report Type: Spontaneous
  Country: US (occurrence: US)
  Receive Date: 20180301
  Receipt Date: 20180301
  Transmission Date: 20180509
  Serious: No
  Sender: FDA-Public Use
  Company Number: US-TAIHO ONCOLOGY INC-EU-2018-00306

PATIENT
  Sex: Male

DRUGS (9)
  1. NYSTOP [Concomitant]
     Active Substance: NYSTATIN
     Dosage: NI
  2. MELATONIN [Concomitant]
     Active Substance: MELATONIN
     Dosage: NI
  3. CURCUMIN [Concomitant]
     Active Substance: CURCUMIN
     Dosage: NI
  4. LONSURF [Suspect]
     Active Substance: TIPIRACIL HYDROCHLORIDE\TRIFLURIDINE
     Indication: COLON CANCER METASTATIC
     Route: 048
     Dates: start: 20171009
  5. ARNICA MONTANA. [Concomitant]
     Active Substance: HOMEOPATHICS
     Dosage: NI
  6. LOMOTIL [Concomitant]
     Active Substance: ATROPINE SULFATE\DIPHENOXYLATE HYDROCHLORIDE
     Dosage: NI
  7. CLEOCIN-T [Concomitant]
     Dosage: NI
  8. MORPHINE SULFATE. [Concomitant]
     Active Substance: MORPHINE SULFATE
     Dosage: NI
  9. ROYAL JELLY [Concomitant]
     Active Substance: ROYAL JELLY
     Dosage: NI

REACTIONS (3)
  - Diarrhoea [Unknown]
  - Nausea [Unknown]
  - Flatulence [Unknown]

NARRATIVE: CASE EVENT DATE: 2017
